FAERS Safety Report 8698983 (Version 3)
Quarter: 2012Q4

REPORT INFORMATION
  Report Type: 
  Country: FI (occurrence: FI)
  Receive Date: 20120802
  Receipt Date: 20121109
  Transmission Date: 20130627
  Serious: Yes (Hospitalization)
  Sender: FDA-Public Use
  Company Number: FI-ABBOTT-12P-055-0960777-00

PATIENT
  Sex: Female

DRUGS (4)
  1. HUMIRA 40 MG/0.8 ML PEN [Suspect]
     Indication: ANKYLOSING SPONDYLITIS
     Route: 058
     Dates: start: 20120308, end: 20120403
  2. ETANERCEPT [Suspect]
     Indication: ANKYLOSING SPONDYLITIS
     Route: 058
     Dates: start: 20120426, end: 20120523
  3. SALAZOPYRIN EN [Concomitant]
     Indication: ANKYLOSING SPONDYLITIS
     Route: 048
  4. MOBIC [Concomitant]
     Indication: ANKYLOSING SPONDYLITIS
     Dosage: Once daily, if necessary
     Route: 048

REACTIONS (6)
  - Sensory disturbance [Recovered/Resolved]
  - Dizziness [Recovered/Resolved]
  - Balance disorder [Recovered/Resolved]
  - Diplopia [Recovered/Resolved]
  - Demyelination [Unknown]
  - CSF immunoglobulin increased [Unknown]
